FAERS Safety Report 20580210 (Version 1)
Quarter: 2022Q1

REPORT INFORMATION
  Report Type: Spontaneous
  Country: US (occurrence: US)
  Receive Date: 20220310
  Receipt Date: 20220310
  Transmission Date: 20220423
  Serious: No
  Sender: FDA-Public Use
  Company Number: US-HORIZON THERAPEUTICS-HZN-2021-006893

PATIENT
  Age: 48 Year
  Sex: Male

DRUGS (24)
  1. PENNSAID [Suspect]
     Active Substance: DICLOFENAC SODIUM
     Indication: Product used for unknown indication
     Dosage: UNK UNK, BID (2 PUMPS, TO EACH AFFECTED KNEE)
     Route: 061
     Dates: start: 20210910, end: 20210913
  2. SUMATRIPTAN [Concomitant]
     Active Substance: SUMATRIPTAN
     Indication: Migraine
     Dosage: 100 MG, 1 TABLET AS NEEDED
     Route: 048
  3. SUMATRIPTAN [Concomitant]
     Active Substance: SUMATRIPTAN
     Dosage: 4 MG/0.5 ML
     Route: 030
  4. SUMATRIPTAN [Concomitant]
     Active Substance: SUMATRIPTAN
     Dosage: 6 MG/0.5 ML, INJECT 0.5 ML
     Route: 030
  5. TAMSULOSIN [Concomitant]
     Active Substance: TAMSULOSIN
     Indication: Product used for unknown indication
     Dosage: 0.4 MG, 1 CAPSULE EVERY DAY BY ORAL ROUTE AT BEDTIME
     Route: 048
     Dates: start: 20210910
  6. TRUVADA [Concomitant]
     Active Substance: EMTRICITABINE\TENOFOVIR DISOPROXIL FUMARATE
     Indication: Product used for unknown indication
     Dosage: 200-300 MG, 1 TABLET EVERY DAY
     Route: 048
     Dates: start: 20210913
  7. VALACYCLOVIR [Concomitant]
     Active Substance: VALACYCLOVIR HYDROCHLORIDE
     Indication: Product used for unknown indication
     Dosage: 1 G, 1 TABLET BY MOUTH ^RF TIMES DAILY FOR 7 DAYS
     Route: 048
  8. VALACYCLOVIR [Concomitant]
     Active Substance: VALACYCLOVIR HYDROCHLORIDE
     Dosage: 1 G, QD
     Route: 048
  9. AMMONIUM LACTATE [Concomitant]
     Active Substance: AMMONIUM LACTATE
     Indication: Product used for unknown indication
  10. ARIPIPRAZOLE [Concomitant]
     Active Substance: ARIPIPRAZOLE
     Indication: Product used for unknown indication
     Dosage: 10 MG, 1 TABLET BY MOUTH ONCE DAILY
  11. BACLOFEN [Concomitant]
     Active Substance: BACLOFEN
     Indication: Product used for unknown indication
     Dosage: 20 MG, 1 TABLET BY MOUTH THREE TIMES DAILY AS DIRECTED
  12. BACLOFEN [Concomitant]
     Active Substance: BACLOFEN
     Dosage: 5 MG, 1 TABLET BY MOUTH THREE TIMES DAILY FOR 3 DAYS THEN 2 TABLETS THREE TIMES DAILY FOR 3 DAYS THE
  13. BOTOX [Concomitant]
     Active Substance: ONABOTULINUMTOXINA
     Indication: Product used for unknown indication
     Dosage: 100 UNIT OF INJECTION
  14. BUPROPION HYDROCHLORIDE [Concomitant]
     Active Substance: BUPROPION HYDROCHLORIDE
     Indication: Product used for unknown indication
     Dosage: 150 MG 24 HR TABLET, 1 TABLET BY MOUTH ONCE DAILY IN THE MORNING
  15. CLOBETASOL [Concomitant]
     Active Substance: CLOBETASOL
     Indication: Product used for unknown indication
     Dosage: APPLY A THIN LAYER TO THE AFFECTED AREA(S) BY TOPICAL ROUTE 2 TIMES PER DAY (AVOID FACE, ARMPIT, AND
     Route: 061
  16. CLONAZEPAM [Concomitant]
     Active Substance: CLONAZEPAM
     Indication: Product used for unknown indication
     Dosage: 1 MG, QD
     Route: 048
  17. DICLOFENAC SODIUM [Concomitant]
     Active Substance: DICLOFENAC SODIUM
     Indication: Product used for unknown indication
     Dosage: 75 MG, BID
     Route: 048
     Dates: start: 20210915
  18. FINASTERIDE [Concomitant]
     Active Substance: FINASTERIDE
     Indication: Product used for unknown indication
     Dosage: 1 MG, EVERY CAY BY ORAL ROUTE FOR 90 DAYS.
     Dates: start: 20210420
  19. FLUOXETINE [Concomitant]
     Active Substance: FLUOXETINE HYDROCHLORIDE
     Indication: Product used for unknown indication
     Dosage: 20 MG, BID
  20. LAMOTRIGINE [Concomitant]
     Active Substance: LAMOTRIGINE
     Indication: Product used for unknown indication
     Dosage: 100 MG, QD
     Route: 048
  21. MOMETASONE [Concomitant]
     Active Substance: MOMETASONE
     Indication: Product used for unknown indication
     Route: 061
  22. PREDNISONE [Concomitant]
     Active Substance: PREDNISONE
     Indication: Product used for unknown indication
     Dosage: 60 MG ON DAY 1, TAPER BY 5 MG DAILY UNTIL OFF
  23. PREVIDENT 5000 BOOSTER [Concomitant]
     Active Substance: SODIUM FLUORIDE
     Indication: Product used for unknown indication
     Dosage: AS DIRECTED.
  24. SILDENAFIL CITRATE [Concomitant]
     Active Substance: SILDENAFIL CITRATE
     Indication: Pulmonary hypertension
     Dosage: 20 MG, AS NEEDED
     Route: 048

REACTIONS (3)
  - Skin irritation [Recovered/Resolved]
  - Skin oedema [Recovered/Resolved]
  - Rash [Unknown]

NARRATIVE: CASE EVENT DATE: 20210910
